FAERS Safety Report 4335791-1 (Version None)
Quarter: 2004Q2

REPORT INFORMATION
  Report Type: 
  Country: None (occurrence: None)
  Receive Date: 20040406
  Receipt Date: 20040322
  Transmission Date: 20050107
  Serious: Yes (Hospitalization)
  Sender: FDA-Public Use
  Company Number: 205413

PATIENT
  Age: 32 Year
  Sex: Female

DRUGS (2)
  1. RAPTIVA [Suspect]
     Indication: PSORIASIS
     Dosage: 1 WEEK, SUBCUTANEOUS
     Route: 058
     Dates: start: 20040206, end: 20040301
  2. CIPROFLOXACIN [Suspect]
     Dosage: ORAL
     Route: 048

REACTIONS (3)
  - DRUG HYPERSENSITIVITY [None]
  - SKIN REACTION [None]
  - TREATMENT NONCOMPLIANCE [None]
